FAERS Safety Report 9149341 (Version 1)
Quarter: 2013Q1

REPORT INFORMATION
  Report Type: Spontaneous
  Country: US (occurrence: US)
  Receive Date: 20130308
  Receipt Date: 20130308
  Transmission Date: 20140127
  Serious: Yes (Other)
  Sender: FDA-Public Use
  Company Number: US-BRISTOL-MYERS SQUIBB COMPANY-17433715

PATIENT
  Age: 84 Year
  Sex: Male
  Weight: 47.16 kg

DRUGS (1)
  1. ELIQUIS [Suspect]
     Indication: ATRIAL FIBRILLATION
     Dates: start: 201302, end: 201302

REACTIONS (2)
  - Transient ischaemic attack [Unknown]
  - Carotid artery stenosis [Unknown]
